FAERS Safety Report 6637987-2 (Version None)
Quarter: 2010Q1

REPORT INFORMATION
  Report Type: 
  Country: None (occurrence: None)
  Receive Date: 20100301
  Receipt Date: 20090409
  Transmission Date: 20100710
  Serious: Yes (Other)
  Sender: FDA-Public Use
  Company Number: RB-7403-2008

PATIENT
  Age: 24 Month
  Sex: Male

DRUGS (1)
  1. SUBOXONE [Suspect]
     Indication: DRUG USE FOR UNKNOWN INDICATION
     Dosage: CHILD ACCIDENTLY INGESTED PART OF A SUBOXONE 8 MG TABLET
     Dates: start: 20081211, end: 20081211

REACTIONS (2)
  - ACCIDENTAL DRUG INTAKE BY CHILD [None]
  - SOMNOLENCE [None]
